FAERS Safety Report 23279751 (Version 1)
Quarter: 2023Q4

REPORT INFORMATION
  Report Type: Spontaneous
  Country: US (occurrence: US)
  Receive Date: 20231208
  Receipt Date: 20231208
  Transmission Date: 20240110
  Serious: No
  Sender: FDA-Public Use
  Company Number: US-SA-2023SA257245

PATIENT
  Sex: Male

DRUGS (9)
  1. DUPIXENT [Suspect]
     Active Substance: DUPILUMAB
     Indication: Asthma
     Dosage: 300 MG, QOW
     Route: 058
  2. CELLCEPT [Concomitant]
     Active Substance: MYCOPHENOLATE MOFETIL
  3. CINACALCET [Concomitant]
     Active Substance: CINACALCET
  4. NOVOLOG [Concomitant]
     Active Substance: INSULIN ASPART
  5. PROGRAF [Concomitant]
     Active Substance: TACROLIMUS
  6. SPIRIVA [Concomitant]
     Active Substance: TIOTROPIUM BROMIDE MONOHYDRATE
  7. SYMBICORT [Concomitant]
     Active Substance: BUDESONIDE\FORMOTEROL FUMARATE DIHYDRATE
  8. TOUJEO MAX [Concomitant]
     Active Substance: INSULIN GLARGINE
  9. TRULICITY [Concomitant]
     Active Substance: DULAGLUTIDE

REACTIONS (3)
  - Lung disorder [Not Recovered/Not Resolved]
  - Pulmonary function test increased [Unknown]
  - Chest discomfort [Unknown]
